FAERS Safety Report 5895343-9 (Version None)
Quarter: 2008Q3

REPORT INFORMATION
  Report Type: 
  Country: None (occurrence: None)
  Receive Date: 20080923
  Receipt Date: 20080923
  Transmission Date: 20090109
  Serious: Yes (Hospitalization)
  Sender: FDA-Public Use
  Company Number: None

PATIENT
  Age: 45 Year
  Sex: Female
  Weight: 74.8435 kg

DRUGS (1)
  1. COUNTER ACT PAIN EXTRA STRENGTH 500MG MELALEUCA INC. [Suspect]
     Indication: HEADACHE
     Dosage: 2 FIRST TIME TAKEN PO
     Route: 048
     Dates: start: 20080329, end: 20080329

REACTIONS (2)
  - HYPOAESTHESIA [None]
  - VISION BLURRED [None]
